FAERS Safety Report 5521654-2 (Version None)
Quarter: 2007Q4

REPORT INFORMATION
  Report Type: 
  Country: None (occurrence: None)
  Receive Date: 20071115
  Receipt Date: 20071107
  Transmission Date: 20080405
  Serious: Yes (Hospitalization)
  Sender: FDA-Public Use
  Company Number: 2007SP022612

PATIENT
  Age: 64 Year
  Sex: Male
  Weight: 52 kg

DRUGS (8)
  1. TEMODAL [Suspect]
     Indication: GLIOBLASTOMA MULTIFORME
     Dosage: 150 MG/M2; QD; PO; 200 MG/M2; QD; PO
     Route: 048
     Dates: start: 20061024, end: 20061028
  2. TEMODAL [Suspect]
     Indication: GLIOBLASTOMA MULTIFORME
     Dosage: 150 MG/M2; QD; PO; 200 MG/M2; QD; PO
     Route: 048
     Dates: start: 20061123, end: 20061127
  3. TEMODAL [Suspect]
     Indication: GLIOBLASTOMA MULTIFORME
     Dosage: 150 MG/M2; QD; PO; 200 MG/M2; QD; PO
     Route: 048
     Dates: start: 20061222, end: 20061226
  4. TEMODAL [Suspect]
     Indication: GLIOBLASTOMA MULTIFORME
     Dosage: 150 MG/M2; QD; PO; 200 MG/M2; QD; PO
     Route: 048
     Dates: start: 20070122, end: 20070126
  5. EXCEGRAN [Concomitant]
  6. RINDERON [Concomitant]
  7. FAMOTIDINE [Concomitant]
  8. ZOFRAN ZYDIS [Concomitant]

REACTIONS (2)
  - ASPIRATION [None]
  - PNEUMONIA [None]
